FAERS Safety Report 7088163-3 (Version None)
Quarter: 2010Q4

REPORT INFORMATION
  Report Type: 
  Country: None (occurrence: None)
  Receive Date: 20101028
  Receipt Date: 20101013
  Transmission Date: 20110411
  Serious: Yes (Death)
  Sender: FDA-Public Use
  Company Number: AUR-APL-2010-02624

PATIENT
  Age: 40 Year

DRUGS (8)
  1. ZOLPIDEM [Suspect]
  2. LAMOTRIGINE [Suspect]
  3. IBUPROFEN [Suspect]
     Route: 048
  4. DIAZEPAM [Suspect]
     Route: 048
  5. QUETIAPINE [Suspect]
     Route: 048
  6. ALPRAZOLAM [Suspect]
     Route: 048
  7. LORATADINE [Suspect]
     Route: 048
  8. TIAGABINE HCL [Suspect]
     Route: 048

REACTIONS (2)
  - COMPLETED SUICIDE [None]
  - DRUG TOXICITY [None]
